FAERS Safety Report 11512208 (Version 1)
Quarter: 2015Q3

REPORT INFORMATION
  Report Type: Report from Study
  Country: US (occurrence: US)
  Receive Date: 20150916
  Receipt Date: 20150916
  Transmission Date: 20151125
  Serious: Yes (Other)
  Sender: FDA-Public Use
  Company Number: US-AMGEN-USASL2015094680

PATIENT
  Age: 59 Year
  Sex: Female

DRUGS (3)
  1. ENBREL [Suspect]
     Active Substance: ETANERCEPT
     Indication: RHEUMATOID ARTHRITIS
     Dosage: 50 MG, QWK
     Route: 065
  2. METHOTREXATE [Concomitant]
     Active Substance: METHOTREXATE
     Dosage: UNK
  3. PREDNISONE. [Concomitant]
     Active Substance: PREDNISONE
     Dosage: UNK

REACTIONS (10)
  - Condition aggravated [Unknown]
  - Walking aid user [Unknown]
  - Injection site erythema [Recovered/Resolved]
  - Inflammation [Not Recovered/Not Resolved]
  - Cough [Unknown]
  - Injection site discolouration [Recovered/Resolved]
  - Arthropathy [Unknown]
  - Abasia [Unknown]
  - Arthritis [Not Recovered/Not Resolved]
  - Joint contracture [Unknown]

NARRATIVE: CASE EVENT DATE: 20150909
